FAERS Safety Report 4947222-9 (Version None)
Quarter: 2006Q1

REPORT INFORMATION
  Report Type: 
  Country: None (occurrence: None)
  Receive Date: 20060317
  Receipt Date: 20060306
  Transmission Date: 20060701
  Serious: Yes (Hospitalization)
  Sender: FDA-Public Use
  Company Number: PHBS2006ES03499

PATIENT
  Age: 89 Year
  Sex: Female

DRUGS (3)
  1. LACEROL [Suspect]
     Dates: end: 20050704
  2. IDAPTAN [Suspect]
     Dosage: UNK, UNK
     Dates: end: 20050704
  3. CO-DIOVAN [Suspect]
     Dosage: 120 MG/DAY
     Dates: end: 20050704

REACTIONS (2)
  - HYPERKALAEMIA [None]
  - NODAL ARRHYTHMIA [None]
